FAERS Safety Report 8455342-X (Version None)
Quarter: 2012Q2

REPORT INFORMATION
  Report Type: 
  Country: None (occurrence: None)
  Receive Date: 20120621
  Receipt Date: 20120618
  Transmission Date: 20120825
  Serious: Yes (Death, Hospitalization, Other)
  Sender: FDA-Public Use
  Company Number: US-JNJFOC-20120517687

PATIENT
  Sex: Male
  Weight: 73 kg

DRUGS (6)
  1. WARFARIN SODIUM [Concomitant]
     Dates: end: 20120517
  2. AMIODARONE HYDROCHLORIDE [Concomitant]
     Route: 048
  3. XARELTO [Suspect]
     Indication: PULMONARY EMBOLISM
     Dosage: 1ST DOSE 9:03 PM, LAST DOSE PRIOR TO BLEEDING EVENT 20-MAY-2012 10:55 PM
     Route: 048
     Dates: start: 20120519, end: 20120520
  4. ASPIRIN [Concomitant]
  5. AMBIEN [Concomitant]
  6. CLOPIDOGREL [Concomitant]
     Dates: end: 20120519

REACTIONS (7)
  - LACERATION [None]
  - FALL [None]
  - EPISTAXIS [None]
  - SUBDURAL HAEMATOMA [None]
  - SUBARACHNOID HAEMORRHAGE [None]
  - INTERNATIONAL NORMALISED RATIO INCREASED [None]
  - CONFUSIONAL STATE [None]
